FAERS Safety Report 24799257 (Version 1)
Quarter: 2025Q1

REPORT INFORMATION
  Report Type: Spontaneous
  Country: US (occurrence: US)
  Receive Date: 20250102
  Receipt Date: 20250102
  Transmission Date: 20250409
  Serious: No
  Sender: BAYER HEALTHCARE LLC
  Company Number: US-BAYER-2024A183491

PATIENT
  Sex: Male

DRUGS (6)
  1. ALEVE [Suspect]
     Active Substance: NAPROXEN SODIUM
     Indication: Arthralgia
  2. ALEVE [Suspect]
     Active Substance: NAPROXEN SODIUM
     Indication: Arthralgia
  3. TYLENOL [Concomitant]
     Active Substance: ACETAMINOPHEN
     Indication: Arthralgia
  4. TYLENOL [Concomitant]
     Active Substance: ACETAMINOPHEN
     Indication: Arthralgia
  5. IBUPROFEN [Concomitant]
     Active Substance: IBUPROFEN
     Indication: Arthralgia
  6. IBUPROFEN [Concomitant]
     Active Substance: IBUPROFEN
     Indication: Arthralgia

REACTIONS (1)
  - Therapeutic product effect incomplete [Unknown]
